FAERS Safety Report 8154723-1 (Version None)
Quarter: 2012Q1

REPORT INFORMATION
  Report Type: 
  Country: None (occurrence: None)
  Receive Date: 20120221
  Receipt Date: 20120207
  Transmission Date: 20120608
  Serious: Yes (Other)
  Sender: FDA-Public Use
  Company Number: PHHY2012FR007294

PATIENT
  Sex: Female
  Weight: 64 kg

DRUGS (2)
  1. HYDROCORTISONE [Concomitant]
     Dosage: 20 MG, DAILY
  2. SANDOSTATIN LAR [Suspect]
     Indication: ACROMEGALY
     Dosage: 10 MG, UNK
     Route: 030
     Dates: start: 20111109, end: 20111110

REACTIONS (8)
  - LOSS OF CONSCIOUSNESS [None]
  - HYPOGLYCAEMIA [None]
  - CONVULSION [None]
  - HYPOTENSION [None]
  - MALAISE [None]
  - HYPERHIDROSIS [None]
  - PALLOR [None]
  - ASTHENIA [None]
